FAERS Safety Report 7798384-X (Version None)
Quarter: 2011Q4

REPORT INFORMATION
  Report Type: 
  Country: None (occurrence: None)
  Receive Date: 20111005
  Receipt Date: 20110928
  Transmission Date: 20120403
  Serious: Yes (Hospitalization, Other)
  Sender: FDA-Public Use
  Company Number: US-PFIZER INC-2011230098

PATIENT
  Age: 57 Year
  Sex: Female

DRUGS (2)
  1. SORAFENIB [Suspect]
     Indication: THYROID CANCER
     Dosage: 200 MG, 1X/DAY
     Route: 048
     Dates: start: 20101105, end: 20110922
  2. TEMSIROLIMUS [Suspect]
     Indication: THYROID CANCER
     Dosage: UNK
     Route: 042
     Dates: start: 20101105, end: 20110902

REACTIONS (4)
  - BACK PAIN [None]
  - DIZZINESS [None]
  - DYSARTHRIA [None]
  - PARAESTHESIA [None]
